FAERS Safety Report 23548362 (Version 1)
Quarter: 2024Q1

REPORT INFORMATION
  Report Type: Spontaneous
  Country: US (occurrence: None)
  Receive Date: 20240220
  Receipt Date: 20240220
  Transmission Date: 20240409
  Serious: Yes (Hospitalization)
  Sender: FDA-Public Use
  Company Number: None

PATIENT
  Age: 70 Year
  Sex: Male
  Weight: 52.5 kg

DRUGS (1)
  1. CISPLATIN [Suspect]
     Active Substance: CISPLATIN
     Dates: end: 20230815

REACTIONS (8)
  - Hyponatraemia [None]
  - Asthenia [None]
  - Diarrhoea [None]
  - Hypophagia [None]
  - Acute kidney injury [None]
  - Dysphagia [None]
  - Weight decreased [None]
  - Speech disorder [None]

NARRATIVE: CASE EVENT DATE: 20230818
